FAERS Safety Report 17941811 (Version 1)
Quarter: 2020Q2

REPORT INFORMATION
  Report Type: Spontaneous
  Country: US (occurrence: US)
  Receive Date: 20200625
  Receipt Date: 20200625
  Transmission Date: 20200714
  Serious: No
  Sender: FDA-Public Use
  Company Number: US-SA-2020SA160495

PATIENT

DRUGS (1)
  1. DUPIXENT [Suspect]
     Active Substance: DUPILUMAB
     Indication: DERMATITIS
     Dosage: 300 MG, QOW
     Route: 058
     Dates: start: 20191206

REACTIONS (3)
  - Product dose omission [Not Recovered/Not Resolved]
  - Dermatitis [Not Recovered/Not Resolved]
  - Product use issue [Unknown]

NARRATIVE: CASE EVENT DATE: 20191206
